FAERS Safety Report 13755802 (Version 3)
Quarter: 2020Q3

REPORT INFORMATION
  Report Type: Report from Study
  Country: US (occurrence: US)
  Receive Date: 20170714
  Receipt Date: 20200706
  Transmission Date: 20201102
  Serious: Yes (Death, Hospitalization)
  Sender: FDA-Public Use
  Company Number: US-ROCHE-1940794

PATIENT
  Age: 74 Year
  Sex: Female
  Weight: 117.4 kg

DRUGS (2)
  1. LOVENOX [Suspect]
     Active Substance: ENOXAPARIN SODIUM
     Indication: PRODUCT USED FOR UNKNOWN INDICATION
     Route: 065
  2. TRASTUZUMAB EMTANSINE [Suspect]
     Active Substance: ADO-TRASTUZUMAB EMTANSINE
     Indication: PAPILLARY SEROUS ENDOMETRIAL CARCINOMA
     Dosage: CYCLE: 21 DAYS, 3.6 MG/KG IV OVER 30?90 MINUTES ON DAY 1?02/FEB/2017, 403 MG?10/FEB/2017, 428 MG ?02
     Route: 042
     Dates: start: 20170119, end: 20170323

REACTIONS (7)
  - Upper respiratory tract infection [Fatal]
  - Pyrexia [Recovered/Resolved]
  - Anaemia [Recovered/Resolved]
  - Hip fracture [Recovered/Resolved]
  - Urinary tract infection [Recovered/Resolved]
  - Haematoma [Fatal]
  - Pneumonia [Fatal]

NARRATIVE: CASE EVENT DATE: 20170327
